FAERS Safety Report 6171525-6 (Version None)
Quarter: 2009Q2

REPORT INFORMATION
  Report Type: 
  Country: None (occurrence: None)
  Receive Date: 20090429
  Receipt Date: 20090427
  Transmission Date: 20091009
  Serious: Yes (Death)
  Sender: FDA-Public Use
  Company Number: JP-BAYER-200911330BYL

PATIENT
  Age: 7 Year
  Sex: Female

DRUGS (1)
  1. FLUDARA [Suspect]
     Indication: STEM CELL TRANSPLANT
     Route: 042
     Dates: start: 20080901

REACTIONS (1)
  - LIVER DISORDER [None]
